FAERS Safety Report 10429236 (Version 2)
Quarter: 2014Q3

REPORT INFORMATION
  Report Type: Spontaneous
  Country: IT (occurrence: IT)
  Receive Date: 20140904
  Receipt Date: 20140904
  Transmission Date: 20150326
  Serious: Yes (Other)
  Sender: FDA-Public Use
  Company Number: IT-BRISTOL-MYERS SQUIBB COMPANY-21225040

PATIENT
  Age: 56 Year
  Sex: Female

DRUGS (5)
  1. CARDURA [Concomitant]
     Active Substance: DOXAZOSIN MESYLATE
  2. CARBOPLATIN. [Suspect]
     Active Substance: CARBOPLATIN
     Indication: PERITONEAL CARCINOMA METASTATIC
     Route: 042
     Dates: start: 20140613
  3. LOBIVON [Concomitant]
     Active Substance: NEBIVOLOL HYDROCHLORIDE
  4. PACLITAXEL. [Suspect]
     Active Substance: PACLITAXEL
     Indication: PERITONEAL CARCINOMA METASTATIC
     Route: 042
     Dates: start: 20140613, end: 20140704
  5. MODURETIC 5-50 [Concomitant]
     Active Substance: AMILORIDE HYDROCHLORIDE\HYDROCHLOROTHIAZIDE

REACTIONS (8)
  - Neutropenia [Recovering/Resolving]
  - Erythema [Recovering/Resolving]
  - Throat tightness [Recovering/Resolving]
  - Anaemia [Recovering/Resolving]
  - Abdominal pain [Recovering/Resolving]
  - Dry mouth [Recovering/Resolving]
  - Off label use [Unknown]
  - Lacrimation increased [Recovering/Resolving]

NARRATIVE: CASE EVENT DATE: 20140624
